FAERS Safety Report 23635021 (Version 1)
Quarter: 2024Q1

REPORT INFORMATION
  Report Type: Spontaneous
  Country: NL (occurrence: NL)
  Receive Date: 20240315
  Receipt Date: 20240315
  Transmission Date: 20240410
  Serious: Yes (Other)
  Sender: FDA-Public Use
  Company Number: NL-ABBVIE-4738635

PATIENT
  Sex: Male

DRUGS (29)
  1. POLYETHYLENE GLYCOLS [Suspect]
     Active Substance: POLYETHYLENE GLYCOLS
     Indication: Constipation
     Dosage: 1.5 DOSAGE FORM
     Route: 048
  2. POLYETHYLENE GLYCOLS [Suspect]
     Active Substance: POLYETHYLENE GLYCOLS
     Dosage: 1 DOSAGE FORM, ONCE A DAY
     Route: 048
  3. CARBIDOPA\LEVODOPA [Suspect]
     Active Substance: CARBIDOPA\LEVODOPA
     Indication: Parkinson^s disease
     Dosage: MD: 13.5 ML; CD: 4.1 ML/H; ED: 1.0 ML
     Route: 065
     Dates: start: 20231220, end: 20240213
  4. CARBIDOPA\LEVODOPA [Suspect]
     Active Substance: CARBIDOPA\LEVODOPA
     Dosage: MD: 13.5 ML; CD: 4.0 ML/H; ED: 1.0 ML, DURATION TEXT: REMAINS AT 16 HOURS
     Route: 065
  5. CARBIDOPA\LEVODOPA [Suspect]
     Active Substance: CARBIDOPA\LEVODOPA
     Dosage: MD: 13.5 ML; CD: 3.8 ML/H; ED: 1.0 ML
     Route: 065
     Dates: start: 20230524, end: 20230718
  6. CARBIDOPA\LEVODOPA [Suspect]
     Active Substance: CARBIDOPA\LEVODOPA
     Dosage: MD: 13.5 ML; CD: 3.9 ML/H; ED: 1.0 MLDURATION TEXT: REMAINS AT 16 HOURS
     Route: 065
     Dates: start: 20231107, end: 20231107
  7. CARBIDOPA\LEVODOPA [Suspect]
     Active Substance: CARBIDOPA\LEVODOPA
     Dosage: MD: 13.5 ML; CD: 3.6 ML/H; ED: 1.0 ML
     Route: 065
  8. CARBIDOPA\LEVODOPA [Suspect]
     Active Substance: CARBIDOPA\LEVODOPA
     Dosage: MD: 10.5 ML; CD: 3.3 ML/H; ED: 2.0 MLREMAINS AT 16 HOURS
     Route: 065
  9. CARBIDOPA\LEVODOPA [Suspect]
     Active Substance: CARBIDOPA\LEVODOPA
     Dosage: MD: 10.5 D: 3.1 ML/H; ED: 1.0 ML
     Route: 065
  10. CARBIDOPA\LEVODOPA [Suspect]
     Active Substance: CARBIDOPA\LEVODOPA
     Dosage: MD: 13.5 ML; CD: 3.6 ML/H; ED: 1.0 ML, DURATION TEXT: REMAINS AT 16 HOURS
     Route: 065
  11. CARBIDOPA\LEVODOPA [Suspect]
     Active Substance: CARBIDOPA\LEVODOPA
     Dosage: DURATION TEXT: REMAINS AT 16 HOURS
     Route: 065
  12. CARBIDOPA\LEVODOPA [Suspect]
     Active Substance: CARBIDOPA\LEVODOPA
     Dosage: MD: 10.5 ML; CD: 3.5 ML/H; ED: 2.0 ML
     Route: 065
  13. CARBIDOPA\LEVODOPA [Suspect]
     Active Substance: CARBIDOPA\LEVODOPA
     Dosage: MD: 10.5 ML; CD: 3.3 ML/H; ED: 2.0 ML
     Route: 065
  14. CARBIDOPA\LEVODOPA [Suspect]
     Active Substance: CARBIDOPA\LEVODOPA
     Dosage: MD: 13.5 ML; CD: 0.1 ML/H; ED: 1.0 ML
     Route: 065
  15. CARBIDOPA\LEVODOPA [Suspect]
     Active Substance: CARBIDOPA\LEVODOPA
     Dosage: MD: 10.5 D: 3.1 ML/H; ED: 1.0 ML, DURATION TEXT: REMAINS AT 16 HOURS
     Route: 065
  16. CARBIDOPA\LEVODOPA [Suspect]
     Active Substance: CARBIDOPA\LEVODOPA
     Dosage: MD: 13.5 ML; CD: 3.2 ML/H; ED: 1.0 MLDURATION TEXT: REMAINS AT 16 HOURS
     Route: 065
  17. CARBIDOPA\LEVODOPA [Suspect]
     Active Substance: CARBIDOPA\LEVODOPA
     Dosage: MD: 13.5 ML; CD: 3.4 ML/H; ED: 1.0 ML
     Route: 065
  18. CARBIDOPA\LEVODOPA [Suspect]
     Active Substance: CARBIDOPA\LEVODOPA
     Dosage: MD: 13.5 ML; CD: 3.4 ML/H; ED: 1.0 ML
     Route: 065
  19. CARBIDOPA\LEVODOPA [Suspect]
     Active Substance: CARBIDOPA\LEVODOPA
     Dosage: MD: 10.5 ML; CD: 3.5 ML/H; ED: 2.0 MLDURATION TEXT: REMAINS AT 16 HOURS
     Route: 065
  20. CARBIDOPA\LEVODOPA [Suspect]
     Active Substance: CARBIDOPA\LEVODOPA
     Dosage: MD: 10.5 ML; CD: 3.7 ML/H; ED: 2.0 ML
     Route: 065
  21. CARBIDOPA\LEVODOPA [Suspect]
     Active Substance: CARBIDOPA\LEVODOPA
     Dosage: MD: 10.5 D: 3.1 ML/H; ED: 1.0 ML
     Route: 065
  22. CARBIDOPA\LEVODOPA [Suspect]
     Active Substance: CARBIDOPA\LEVODOPA
     Dosage: MD: 13.5 ML; CD: 3.8 ML/H; ED: 1.0 MLDURATION TEXT: REMAINS AT 16 HOURS
     Route: 065
     Dates: start: 20231101, end: 20231107
  23. CARBIDOPA\LEVODOPA [Suspect]
     Active Substance: CARBIDOPA\LEVODOPA
     Dosage: DURATION TEXT: REMAINS AT 16 HOURS
     Route: 065
     Dates: start: 20221024
  24. CARBIDOPA\LEVODOPA [Suspect]
     Active Substance: CARBIDOPA\LEVODOPA
     Dosage: MD: 10.5 ML; CD: 3.3 ML/H; ED: 2.0 ML
     Route: 065
  25. CARBIDOPA\LEVODOPA [Suspect]
     Active Substance: CARBIDOPA\LEVODOPA
     Dosage: MD: 13.5 ML; CD: 3.4 ML/H; ED: 1.0 ML
     Route: 065
  26. CARBIDOPA\LEVODOPA [Suspect]
     Active Substance: CARBIDOPA\LEVODOPA
     Dosage: MD: 13.5 ML; CD: 4.0 ML/H; ED: 1.0 ML
     Route: 065
     Dates: start: 20230718
  27. ENTACAPONE [Concomitant]
     Active Substance: ENTACAPONE
     Indication: Parkinson^s disease
     Dosage: UNK
     Route: 048
  28. MAGNESIUM [Concomitant]
     Active Substance: MAGNESIUM
     Indication: Faecal management
     Dosage: UNK
     Route: 065
  29. ROPINIROLE [Concomitant]
     Active Substance: ROPINIROLE
     Indication: Parkinson^s disease
     Dosage: UNK
     Route: 048

REACTIONS (40)
  - Parkinson^s disease [Not Recovered/Not Resolved]
  - Depression [Not Recovered/Not Resolved]
  - Abnormal faeces [Not Recovered/Not Resolved]
  - Muscle rigidity [Not Recovered/Not Resolved]
  - Stoma site erythema [Recovering/Resolving]
  - Fibroma [Not Recovered/Not Resolved]
  - Fatigue [Not Recovered/Not Resolved]
  - Restless legs syndrome [Not Recovered/Not Resolved]
  - Abnormal dreams [Not Recovered/Not Resolved]
  - Stoma site reaction [Not Recovered/Not Resolved]
  - Dyskinesia [Not Recovered/Not Resolved]
  - Blood iron decreased [Not Recovered/Not Resolved]
  - Unevaluable event [Recovering/Resolving]
  - Freezing phenomenon [Not Recovered/Not Resolved]
  - Emotional disorder [Not Recovered/Not Resolved]
  - Gait disturbance [Not Recovered/Not Resolved]
  - Emotional distress [Not Recovered/Not Resolved]
  - Urinary tract infection [Not Recovered/Not Resolved]
  - Sleep disorder [Not Recovered/Not Resolved]
  - Restlessness [Not Recovered/Not Resolved]
  - Urinary incontinence [Unknown]
  - Gastrointestinal pain [Not Recovered/Not Resolved]
  - Bladder pain [Not Recovered/Not Resolved]
  - Poor quality sleep [Recovering/Resolving]
  - Stress [Not Recovered/Not Resolved]
  - On and off phenomenon [Not Recovered/Not Resolved]
  - Stoma site discharge [Not Recovered/Not Resolved]
  - Malaise [Not Recovered/Not Resolved]
  - Tooth disorder [Not Recovered/Not Resolved]
  - Listless [Recovered/Resolved]
  - Speech disorder [Recovering/Resolving]
  - Bladder catheterisation [Not Recovered/Not Resolved]
  - Tremor [Not Recovered/Not Resolved]
  - Stoma site inflammation [Not Recovered/Not Resolved]
  - Overweight [Not Recovered/Not Resolved]
  - Intentional product misuse [Not Recovered/Not Resolved]
  - Device difficult to use [Recovered/Resolved]
  - Device physical property issue [Not Recovered/Not Resolved]
  - Therapeutic product effect incomplete [Not Recovered/Not Resolved]
  - Device dislocation [Not Recovered/Not Resolved]

NARRATIVE: CASE EVENT DATE: 20230101
